FAERS Safety Report 4531272-0 (Version None)
Quarter: 2004Q4

REPORT INFORMATION
  Report Type: 
  Country: None (occurrence: None)
  Receive Date: 20041206
  Receipt Date: 20040903
  Transmission Date: 20050328
  Serious: No
  Sender: FDA-Public Use
  Company Number: USA040977406

PATIENT
  Age: 60 Year
  Sex: Female

DRUGS (6)
  1. CYMBALTA [Suspect]
     Dosage: 30 MG DAY
     Dates: start: 20040902
  2. EVISTA [Suspect]
  3. DYAZIDE [Concomitant]
  4. SYNTHROID [Concomitant]
  5. ALLEGRA [Concomitant]
  6. FLONASE [Concomitant]

REACTIONS (3)
  - DYSPEPSIA [None]
  - FLATULENCE [None]
  - STOMACH DISCOMFORT [None]
